FAERS Safety Report 23911267 (Version 1)
Quarter: 2024Q2

REPORT INFORMATION
  Report Type: Spontaneous
  Country: US (occurrence: US)
  Receive Date: 20240528
  Receipt Date: 20240528
  Transmission Date: 20240715
  Serious: Yes (Other)
  Sender: FDA-Public Use
  Company Number: US-AMGEN-USASP2024098971

PATIENT
  Age: 44 Year
  Sex: Female

DRUGS (7)
  1. RITUXIMAB [Suspect]
     Active Substance: RITUXIMAB
     Indication: Mantle cell lymphoma
     Dosage: 4 CYCLES
     Route: 065
  2. IBRUTINIB [Suspect]
     Active Substance: IBRUTINIB
     Indication: Mantle cell lymphoma
     Dosage: FOR 14 MONTHS
     Route: 065
  3. R DHAP [Concomitant]
     Indication: Mantle cell lymphoma
     Dosage: 3 CYCLES
     Route: 065
  4. R DHAC [Concomitant]
     Indication: Mantle cell lymphoma
     Dosage: 3 CYCLES
     Route: 065
  5. VENETOCLAX [Concomitant]
     Active Substance: VENETOCLAX
     Indication: Mantle cell lymphoma
     Dosage: FOR 3 YEARS
     Route: 065
  6. METHOTREXATE [Concomitant]
     Active Substance: METHOTREXATE
     Indication: Mantle cell lymphoma
     Dosage: UNK
     Route: 065
  7. ZANUBRUTINIB [Concomitant]
     Active Substance: ZANUBRUTINIB
     Indication: Mantle cell lymphoma
     Dosage: UNK
     Route: 065

REACTIONS (3)
  - Mantle cell lymphoma [Unknown]
  - Cytokine release syndrome [Unknown]
  - Anaemia [Unknown]
